FAERS Safety Report 8479359-4 (Version None)
Quarter: 2012Q2

REPORT INFORMATION
  Report Type: 
  Country: None (occurrence: None)
  Receive Date: 20120629
  Receipt Date: 20120619
  Transmission Date: 20120825
  Serious: Yes (Other)
  Sender: FDA-Public Use
  Company Number: US-DX529-2012DX000137

PATIENT
  Age: 24 Year
  Sex: Female
  Weight: 84.82 kg

DRUGS (7)
  1. NASONEX [Concomitant]
     Indication: HYPERSENSITIVITY
     Route: 045
  2. NASONEX [Concomitant]
     Indication: ASTHMA
     Route: 045
  3. FIRAZYR [Concomitant]
     Indication: HEREDITARY ANGIOEDEMA
  4. ALBUTEROL [Concomitant]
     Indication: ASTHMA
  5. ALLEGRA [Concomitant]
     Indication: HYPERSENSITIVITY
     Route: 048
  6. KALBITOR [Suspect]
     Indication: HEREDITARY ANGIOEDEMA
     Route: 058
     Dates: start: 20120607, end: 20120607
  7. ADVAIR DISKUS 100/50 [Concomitant]
     Indication: ASTHMA

REACTIONS (3)
  - HYPERSENSITIVITY [None]
  - PANIC REACTION [None]
  - HEREDITARY ANGIOEDEMA [None]
